FAERS Safety Report 4992259-7 (Version None)
Quarter: 2006Q2

REPORT INFORMATION
  Report Type: 
  Country: None (occurrence: None)
  Receive Date: 20060502
  Receipt Date: 20060420
  Transmission Date: 20061013
  Serious: Yes (Other)
  Sender: FDA-Public Use
  Company Number: TRP_0756_2006

PATIENT
  Age: 53 Year
  Sex: Male
  Weight: 95.2554 kg

DRUGS (14)
  1. RIBASPHERE [Suspect]
     Indication: HEPATITIS C
     Dosage: 600 MG BID PO
     Route: 048
     Dates: start: 20050801, end: 20051122
  2. INFERGEN [Suspect]
     Indication: HEPATITIS C
     Dosage: 15 MCG QDAY SC
     Route: 058
     Dates: start: 20050801, end: 20051121
  3. LANTUS [Concomitant]
  4. EFFEXOR XR [Concomitant]
  5. METFORMIN HYDROCHLORIDE [Concomitant]
  6. REPAGLINIDE [Concomitant]
  7. VALSARTAN [Concomitant]
  8. CALCIUM GLUCONATE [Concomitant]
  9. OMEGA 3 [Concomitant]
  10. FLAXSEED OIL [Concomitant]
  11. MAGNESIUM SULFATE [Concomitant]
  12. RISPERDAL [Concomitant]
  13. ABILIFY [Concomitant]
  14. EFFEXOR [Concomitant]

REACTIONS (1)
  - DELUSION [None]
